FAERS Safety Report 13466466 (Version 1)
Quarter: 2017Q2

REPORT INFORMATION
  Report Type: Spontaneous
  Country: GB (occurrence: GB)
  Receive Date: 20170421
  Receipt Date: 20170421
  Transmission Date: 20170830
  Serious: Yes (Other)
  Sender: FDA-Public Use
  Company Number: GB-BAYER-2017-070175

PATIENT
  Age: 28 Year
  Sex: Female
  Weight: 65 kg

DRUGS (2)
  1. NAPROXEN SODIUM ({= 220 MG) [Suspect]
     Active Substance: NAPROXEN SODIUM
     Indication: BACK PAIN
     Dosage: UNK
  2. NAPROXEN SODIUM ({= 220 MG) [Suspect]
     Active Substance: NAPROXEN SODIUM
     Indication: INJURY
     Dosage: UNK
     Dates: start: 20170331

REACTIONS (4)
  - Abdominal pain [Recovered/Resolved]
  - Skin exfoliation [Unknown]
  - Rash [Unknown]
  - Skin burning sensation [Recovered/Resolved]

NARRATIVE: CASE EVENT DATE: 20170131
